FAERS Safety Report 23782740 (Version 1)
Quarter: 2024Q2

REPORT INFORMATION
  Report Type: Spontaneous
  Country: IT (occurrence: IT)
  Receive Date: 20240425
  Receipt Date: 20240425
  Transmission Date: 20240715
  Serious: Yes (Hospitalization, Other)
  Sender: FDA-Public Use
  Company Number: IT-AUROBINDO-AUR-APL-2024-018758

PATIENT
  Age: 8 Year
  Sex: Female

DRUGS (1)
  1. RISPERIDONE [Suspect]
     Active Substance: RISPERIDONE
     Indication: Product used for unknown indication
     Dosage: 4.5 MILLIGRAM (PRESCRIBED DOSE: 0.25MG/SINGLE ADMINISTRATION, UNDERTAKEN DOSE: 4,5MG/SINGLE ADMINIST
     Route: 048

REACTIONS (6)
  - Electrocardiogram QT prolonged [Recovered/Resolved]
  - Dysarthria [Recovered/Resolved]
  - Toxicity to various agents [Recovered/Resolved]
  - Accidental overdose [Recovered/Resolved]
  - Product administration error [Unknown]
  - Device use error [Unknown]
